FAERS Safety Report 6805228-9 (Version None)
Quarter: 2010Q2

REPORT INFORMATION
  Report Type: 
  Country: None (occurrence: None)
  Receive Date: 20100628
  Receipt Date: 20071008
  Transmission Date: 20101027
  Serious: No
  Sender: FDA-Public Use
  Company Number: US-PFIZER INC-2007084328

PATIENT
  Sex: Female
  Weight: 63.636 kg

DRUGS (5)
  1. CADUET [Suspect]
     Indication: HYPERTENSION
     Dosage: 5/40 MG
     Dates: start: 20070901
  2. XANAX [Concomitant]
     Indication: DEPRESSION
  3. CELEXA [Concomitant]
     Indication: DEPRESSION
  4. NEXIUM [Concomitant]
  5. IBANDRONATE SODIUM [Concomitant]
     Indication: BONE DISORDER

REACTIONS (2)
  - BLOOD PRESSURE DECREASED [None]
  - FATIGUE [None]
